FAERS Safety Report 17397546 (Version 2)
Quarter: 2020Q1

REPORT INFORMATION
  Report Type: Spontaneous
  Country: US (occurrence: US)
  Receive Date: 20200210
  Receipt Date: 20200229
  Transmission Date: 20200409
  Serious: No
  Sender: FDA-Public Use
  Company Number: US-B.I. PHARMACEUTICALS,INC./RIDGEFIELD-2020-US-006266

PATIENT
  Age: 73 Year
  Sex: Male

DRUGS (2)
  1. JARDIANCE [Suspect]
     Active Substance: EMPAGLIFLOZIN
     Indication: TYPE 2 DIABETES MELLITUS
     Dosage: 10 MG
     Route: 065
     Dates: start: 20200131, end: 20200214
  2. JARDIANCE [Suspect]
     Active Substance: EMPAGLIFLOZIN
     Dosage: 25 MG
     Route: 065
     Dates: start: 20200215

REACTIONS (5)
  - Blood glucose abnormal [Not Recovered/Not Resolved]
  - Pollakiuria [Recovered/Resolved]
  - Atrial fibrillation [Unknown]
  - Hypertension [Unknown]
  - Coronary artery disease [Unknown]

NARRATIVE: CASE EVENT DATE: 202002
